FAERS Safety Report 8601812-0 (Version None)
Quarter: 2012Q3

REPORT INFORMATION
  Report Type: 
  Country: None (occurrence: None)
  Receive Date: 20120817
  Receipt Date: 20120511
  Transmission Date: 20120928
  Serious: Yes (Other)
  Sender: FDA-Public Use
  Company Number: US-BRISTOL-MYERS SQUIBB COMPANY-16541971

PATIENT
  Age: 73 Year
  Sex: Female

DRUGS (3)
  1. LASIX [Concomitant]
  2. SPRYCEL [Suspect]
  3. POTASSIUM [Concomitant]

REACTIONS (4)
  - CARDIAC FAILURE CONGESTIVE [None]
  - LARYNGITIS [None]
  - PLEURAL EFFUSION [None]
  - HYPERTENSION [None]
